FAERS Safety Report 22070132 (Version 2)
Quarter: 2023Q1

REPORT INFORMATION
  Report Type: Spontaneous
  Country: US (occurrence: US)
  Receive Date: 20230307
  Receipt Date: 20230315
  Transmission Date: 20230418
  Serious: Yes (Other)
  Sender: FDA-Public Use
  Company Number: US-PFIZER INC-202300088151

PATIENT
  Age: 36 Year
  Sex: Female

DRUGS (2)
  1. TESTOSTERONE [Suspect]
     Active Substance: TESTOSTERONE
     Indication: Transgender hormonal therapy
     Dosage: 0.5 MG, WEEKLY, FOR 2 YEARS
     Route: 030
  2. TESTOSTERONE [Suspect]
     Active Substance: TESTOSTERONE
     Dosage: 20.25 MG, 2X/DAY, FOR 7.5 YEARS
     Route: 061

REACTIONS (2)
  - Idiopathic intracranial hypertension [Recovering/Resolving]
  - Off label use [Unknown]
